FAERS Safety Report 15622952 (Version 1)
Quarter: 2018Q4

REPORT INFORMATION
  Report Type: Other
  Country: AU (occurrence: AU)
  Receive Date: 20181115
  Receipt Date: 20181115
  Transmission Date: 20190205
  Serious: Yes (Other)
  Sender: FDA-Public Use
  Company Number: AU-LUNDBECK-DKLU2057143

PATIENT
  Age: 9 Year
  Sex: Female

DRUGS (2)
  1. VALPROATE SODIUM. [Suspect]
     Active Substance: VALPROATE SODIUM
     Indication: PRODUCT USED FOR UNKNOWN INDICATION
     Route: 065
  2. CLOBAZAM. [Suspect]
     Active Substance: CLOBAZAM
     Indication: GENERALISED TONIC-CLONIC SEIZURE
     Route: 065

REACTIONS (7)
  - Apnoea [Recovering/Resolving]
  - Respiratory acidosis [Recovering/Resolving]
  - Somnolence [Recovering/Resolving]
  - Hypoventilation [Recovering/Resolving]
  - Lethargy [Recovering/Resolving]
  - Altered state of consciousness [Recovering/Resolving]
  - Sleep disorder [Recovering/Resolving]
